FAERS Safety Report 6332179-9 (Version None)
Quarter: 2009Q3

REPORT INFORMATION
  Report Type: 
  Country: None (occurrence: None)
  Receive Date: 20090827
  Receipt Date: 20090827
  Transmission Date: 20100115
  Serious: Yes (Other)
  Sender: FDA-Public Use
  Company Number: None

PATIENT
  Sex: Female

DRUGS (1)
  1. RETINOL [Suspect]
     Dosage: TOPICAL
     Route: 061
     Dates: start: 20090401, end: 20090501

REACTIONS (1)
  - APPLICATION SITE DISCOLOURATION [None]
